FAERS Safety Report 8523539-6 (Version None)
Quarter: 2012Q3

REPORT INFORMATION
  Report Type: 
  Country: None (occurrence: None)
  Receive Date: 20120720
  Receipt Date: 20120711
  Transmission Date: 20120928
  Serious: No
  Sender: FDA-Public Use
  Company Number: US-BAYER-2012-070546

PATIENT

DRUGS (3)
  1. MOTRIN [Concomitant]
  2. TYLENOL (CAPLET) [Concomitant]
  3. ALEVE (CAPLET) [Suspect]
     Indication: ANALGESIC THERAPY
     Route: 048

REACTIONS (1)
  - PAIN [None]
